FAERS Safety Report 4389586-3 (Version None)
Quarter: 2004Q2

REPORT INFORMATION
  Report Type: 
  Country: None (occurrence: None)
  Receive Date: 20040629
  Receipt Date: 20040224
  Transmission Date: 20050107
  Serious: Yes (Hospitalization)
  Sender: FDA-Public Use
  Company Number: US-JNJFOC-20040205773

PATIENT
  Age: 68 Year
  Sex: Female

DRUGS (5)
  1. DURAGESIC [Suspect]
     Indication: PAIN
     Dosage: 25,50 UG/HR, 1 IN 72 HOUR, TRANSDERMAL
     Route: 062
     Dates: start: 20030501, end: 20030601
  2. DURAGESIC [Suspect]
     Indication: PAIN
     Dosage: 25,50 UG/HR, 1 IN 72 HOUR, TRANSDERMAL
     Route: 062
     Dates: start: 20030601, end: 20031001
  3. PERCOCET [Concomitant]
  4. INTERFERON (INTERFERON) [Concomitant]
  5. INSULIN (INSULIN) SOLUTION [Concomitant]

REACTIONS (3)
  - DRUG WITHDRAWAL SYNDROME [None]
  - DYSPNOEA [None]
  - VOMITING [None]
